FAERS Safety Report 5574685-0 (Version None)
Quarter: 2007Q4

REPORT INFORMATION
  Report Type: 
  Country: None (occurrence: None)
  Receive Date: 20071226
  Receipt Date: 20071226
  Transmission Date: 20080405
  Serious: Yes (Life-Threatening, Hospitalization)
  Sender: FDA-Public Use
  Company Number: None

PATIENT
  Age: 79 Year
  Sex: Female
  Weight: 74 kg

DRUGS (1)
  1. EXELON [Suspect]
     Indication: DEMENTIA
     Dates: start: 20071106, end: 20071219

REACTIONS (1)
  - HAEMORRHAGE INTRACRANIAL [None]
